FAERS Safety Report 9399802 (Version 1)
Quarter: 2013Q3

REPORT INFORMATION
  Report Type: Report from Study
  Country: RS (occurrence: RS)
  Receive Date: 20130715
  Receipt Date: 20130715
  Transmission Date: 20140515
  Serious: Yes (Disabling, Other)
  Sender: FDA-Public Use
  Company Number: PHHY2013RS072733

PATIENT
  Sex: Female
  Weight: 56.5 kg

DRUGS (6)
  1. EVEROLIMUS [Suspect]
     Indication: ASTROCYTOMA, LOW GRADE
     Dosage: 5 MG, QD
     Route: 048
     Dates: start: 201207
  2. SOMATULINE LA [Concomitant]
     Indication: NEUROENDOCRINE TUMOUR
     Dosage: 120 MG, QMO
     Dates: start: 201001
  3. DIFLUCAN [Concomitant]
     Dosage: 200 MG, BID
     Route: 051
     Dates: start: 20130410, end: 20130522
  4. SPIRONOLACTONE [Concomitant]
     Dosage: 50 MG, QD
     Route: 048
     Dates: start: 20130501
  5. FUROSEMIDE [Concomitant]
     Dosage: 40 MG, QD
     Route: 048
     Dates: start: 20130501
  6. PROPRANOLOL [Concomitant]
     Dosage: 20 MG, QD
     Route: 048
     Dates: start: 20130501

REACTIONS (12)
  - Portal hypertension [Not Recovered/Not Resolved]
  - Varices oesophageal [Not Recovered/Not Resolved]
  - Ascites [Not Recovered/Not Resolved]
  - C-reactive protein increased [Unknown]
  - Bronchopulmonary aspergillosis [Recovered/Resolved]
  - Chills [Unknown]
  - Tachycardia [Unknown]
  - Anaemia [Unknown]
  - Weight decreased [Unknown]
  - Astrocytoma, low grade [Unknown]
  - Malignant neoplasm progression [Unknown]
  - Drug ineffective [Unknown]
